FAERS Safety Report 20188196 (Version 1)
Quarter: 2021Q4

REPORT INFORMATION
  Report Type: Spontaneous
  Country: US (occurrence: US)
  Receive Date: 20211215
  Receipt Date: 20211215
  Transmission Date: 20220304
  Serious: Yes (Other)
  Sender: FDA-Public Use
  Company Number: US-PURDUE-USA-2020-0284412

PATIENT
  Sex: Female

DRUGS (12)
  1. HYSINGLA ER [Suspect]
     Active Substance: HYDROCODONE BITARTRATE
     Indication: Injury
     Dosage: UNKNOWN
     Route: 048
  2. OXYCODONE HYDROCHLORIDE [Suspect]
     Active Substance: OXYCODONE HYDROCHLORIDE
     Indication: Injury
     Dosage: UNKNOWN
     Route: 048
  3. HYDROCODONE BITARTRATE AND ACETAMINOPHEN [Suspect]
     Active Substance: ACETAMINOPHEN\HYDROCODONE BITARTRATE
     Indication: Injury
     Dosage: UNKNOWN
     Route: 048
  4. HYDROMORPHONE HYDROCHLORIDE [Suspect]
     Active Substance: HYDROMORPHONE HYDROCHLORIDE
     Indication: Injury
     Dosage: UNKNOWN
     Route: 048
  5. TRAMADOL [Suspect]
     Active Substance: TRAMADOL
     Indication: Injury
     Dosage: UNKNOWN
     Route: 048
  6. OXYCODONE [Suspect]
     Active Substance: OXYCODONE
     Indication: Injury
     Dosage: UNKNOWN
     Route: 048
  7. PALLADONE [Suspect]
     Active Substance: HYDROMORPHONE HYDROCHLORIDE
     Indication: Injury
     Dosage: UNKNOWN
     Route: 048
  8. MORPHINE SULFATE [Suspect]
     Active Substance: MORPHINE SULFATE
     Indication: Injury
     Dosage: UNKNOWN
     Route: 048
  9. DHC PLUS [Suspect]
     Active Substance: ACETAMINOPHEN\CAFFEINE\DIHYDROCODEINE BITARTRATE
     Indication: Injury
     Dosage: UNKNOWN
     Route: 048
  10. HYDROMORPHONE HYDROCHLORIDE [Suspect]
     Active Substance: HYDROMORPHONE HYDROCHLORIDE
     Indication: Injury
     Dosage: UNKNOWN
     Route: 065
  11. HYDROCODONE BITARTRATE [Suspect]
     Active Substance: HYDROCODONE BITARTRATE
     Indication: Injury
     Dosage: UNKNOWN
     Route: 065
  12. OXYCODONE HYDROCHLORIDE [Suspect]
     Active Substance: OXYCODONE HYDROCHLORIDE
     Indication: Injury
     Dosage: UNKNOWN
     Route: 065

REACTIONS (2)
  - Drug dependence [Unknown]
  - Anxiety [Unknown]
